FAERS Safety Report 16491775 (Version 1)
Quarter: 2019Q3

REPORT INFORMATION
  Report Type: Spontaneous
  Country: US (occurrence: US)
  Receive Date: 20190627
  Receipt Date: 20190627
  Transmission Date: 20191004
  Serious: Yes (Other)
  Sender: FDA-Public Use
  Company Number: None

PATIENT
  Sex: Female
  Weight: 102.06 kg

DRUGS (2)
  1. XARELTO [Concomitant]
     Active Substance: RIVAROXABAN
  2. PARAGARD T 380A [Suspect]
     Active Substance: COPPER

REACTIONS (4)
  - Menorrhagia [None]
  - Vaginal haemorrhage [None]
  - Syncope [None]
  - Coital bleeding [None]

NARRATIVE: CASE EVENT DATE: 20190624
